FAERS Safety Report 24395422 (Version 2)
Quarter: 2024Q4

REPORT INFORMATION
  Report Type: Spontaneous
  Country: US (occurrence: US)
  Receive Date: 20241004
  Receipt Date: 20241025
  Transmission Date: 20250114
  Serious: No
  Sender: ABBVIE
  Company Number: US-ABBVIE-5941082

PATIENT
  Sex: Female

DRUGS (2)
  1. SYNTHROID [Suspect]
     Active Substance: LEVOTHYROXINE SODIUM
     Indication: Hypothyroidism
     Route: 048
  2. Covid 19 vaccine [Concomitant]
     Indication: COVID-19 immunisation

REACTIONS (5)
  - Atrial fibrillation [Unknown]
  - Blood thyroid stimulating hormone abnormal [Not Recovered/Not Resolved]
  - Thyroxine abnormal [Not Recovered/Not Resolved]
  - Fatigue [Unknown]
  - Malaise [Unknown]

NARRATIVE: CASE EVENT DATE: 20240101
